FAERS Safety Report 6087294 (Version 7)
Quarter: 2012Q4

REPORT INFORMATION
  Report Type: 
  Country: US (occurrence: US)
  Receive Date: 20060721
  Receipt Date: 20121019
  Transmission Date: 20130627
  Serious: Yes (Other)
  Sender: FDA-Public Use
  Company Number: PHEH2006US08866

PATIENT
  Age: 50 Year
  Sex: Male
  Weight: 87.98 kg

DRUGS (33)
  1. ZOMETA [Suspect]
  2. BACTROBAN [Concomitant]
  3. CEPHALEXIN [Concomitant]
  4. CIPRO [Concomitant]
  5. HYDROCODONE W/APAP [Concomitant]
  6. LOTRISONE [Concomitant]
  7. ZYBAN [Concomitant]
  8. FLOMAX ^BOEHRINGER INGELHEIM^ [Concomitant]
  9. ALPRAZOLAM [Concomitant]
  10. APAP W/CODEINE [Concomitant]
  11. FUROSEMIDE [Concomitant]
  12. SMZ-TMP DS [Concomitant]
  13. TRAMADOL HYDROCHLORIDE [Concomitant]
  14. ZYRTEC [Concomitant]
  15. MEGESTROL ACETATE [Concomitant]
  16. PREDNISONE [Concomitant]
  17. HYDROCORT [Concomitant]
  18. KETOCONAZOLE [Concomitant]
  19. RANITIDINE [Concomitant]
  20. ULTRACET [Concomitant]
  21. NYSTATIN [Concomitant]
  22. DEXAMETHASON ^COPHAR^ [Concomitant]
  23. HYDROCHLOROTHIAZIDE [Concomitant]
  24. KLOR-CON [Concomitant]
  25. SPIRIVA ^BOEHRINGER INGELHEIM^ [Concomitant]
  26. PROTONIX ^PHARMACIA^ [Concomitant]
  27. LUPRON [Concomitant]
  28. ZOLADEX [Concomitant]
  29. CASODEX [Concomitant]
  30. MEGACE [Concomitant]
  31. OS-CAL [Concomitant]
  32. TAXOTERE [Concomitant]
  33. NAVELBINE ^ASTA MEDICA^ [Concomitant]

REACTIONS (25)
  - Prostate cancer metastatic [Unknown]
  - Pulmonary mass [Unknown]
  - Extraskeletal ossification [Unknown]
  - Metastatic neoplasm [Unknown]
  - Metastases to bone [Unknown]
  - Bone pain [Unknown]
  - Weight decreased [Unknown]
  - Hilar lymphadenopathy [Unknown]
  - Bronchitis [Unknown]
  - Osteonecrosis of jaw [Unknown]
  - Injury [Not Recovered/Not Resolved]
  - Pain [Not Recovered/Not Resolved]
  - Sinusitis [Unknown]
  - Anxiety [Not Recovered/Not Resolved]
  - Blood alkaline phosphatase increased [Unknown]
  - Gynaecomastia [Unknown]
  - Chest pain [Unknown]
  - Abdominal pain upper [Unknown]
  - Urticaria [Unknown]
  - Dyspnoea [Unknown]
  - Alcohol abuse [Unknown]
  - Intervertebral disc degeneration [Unknown]
  - Muscle spasms [Unknown]
  - Rotator cuff syndrome [Unknown]
  - Arthritis [Unknown]
